FAERS Safety Report 13783649 (Version 1)
Quarter: 2017Q3

REPORT INFORMATION
  Report Type: Spontaneous
  Country: US (occurrence: US)
  Receive Date: 20170724
  Receipt Date: 20170724
  Transmission Date: 20171127
  Serious: Yes (Hospitalization)
  Sender: FDA-Public Use
  Company Number: US-BAYER-2017-138588

PATIENT
  Age: 74 Year
  Sex: Male
  Weight: 72.97 kg

DRUGS (1)
  1. MEXSANA MEDICATED [Suspect]
     Active Substance: STARCH, CORN
     Indication: THERAPEUTIC SKIN CARE TOPICAL
     Dosage: 1 DF, UNK
     Route: 061
     Dates: start: 201707, end: 201707

REACTIONS (4)
  - Feeling abnormal [Recovering/Resolving]
  - Groin pain [Recovering/Resolving]
  - Adverse reaction [Recovering/Resolving]
  - Blister [Recovering/Resolving]

NARRATIVE: CASE EVENT DATE: 20170714
